FAERS Safety Report 5317649-4 (Version None)
Quarter: 2007Q2

REPORT INFORMATION
  Report Type: 
  Country: None (occurrence: None)
  Receive Date: 20070507
  Receipt Date: 20070425
  Transmission Date: 20071010
  Serious: Yes (Hospitalization, Other)
  Sender: FDA-Public Use
  Company Number: PHEH2007US04636

PATIENT
  Age: 56 Year
  Sex: Male
  Weight: 108 kg

DRUGS (5)
  1. ZELNORM [Suspect]
     Indication: CONSTIPATION
     Dosage: 6 MG, 2 TABLETS IN QAM, 2 TABLETS QPM
     Route: 048
     Dates: start: 20061001, end: 20070301
  2. TOPROL-XL [Concomitant]
     Indication: STENT PLACEMENT
     Dosage: 100 MG, QD
     Dates: start: 20000101
  3. PLAVIX [Concomitant]
     Indication: STENT PLACEMENT
     Dosage: 75 MG, QD
     Dates: start: 20000101
  4. LIPID MODIFYING AGENTS [Concomitant]
     Indication: BLOOD CHOLESTEROL INCREASED
  5. ANTI-DIABETICS [Concomitant]
     Indication: DIABETES MELLITUS NON-INSULIN-DEPENDENT

REACTIONS (5)
  - CONSTIPATION [None]
  - CORONARY ARTERIAL STENT INSERTION [None]
  - CORONARY ARTERY OCCLUSION [None]
  - HAEMORRHOID OPERATION [None]
  - HAEMORRHOIDS [None]
